FAERS Safety Report 6298778-8 (Version None)
Quarter: 2009Q3

REPORT INFORMATION
  Report Type: 
  Country: None (occurrence: None)
  Receive Date: 20090805
  Receipt Date: 20090805
  Transmission Date: 20100115
  Serious: No
  Sender: FDA-Public Use
  Company Number: None

PATIENT
  Age: 68 Year
  Sex: Female
  Weight: 79.3795 kg

DRUGS (1)
  1. AMOXICILLIN [Suspect]
     Dosage: 4 X 500MG ONCE (= 2000 MG TOTAL)

REACTIONS (3)
  - ABDOMINAL PAIN [None]
  - NASOPHARYNGITIS [None]
  - NAUSEA [None]
